FAERS Safety Report 17939255 (Version 1)
Quarter: 2020Q2

REPORT INFORMATION
  Report Type: Spontaneous
  Country: US (occurrence: US)
  Receive Date: 20200625
  Receipt Date: 20200625
  Transmission Date: 20200714
  Serious: No
  Sender: FDA-Public Use
  Company Number: US-APOTEX-2019AP019678

PATIENT
  Sex: Female

DRUGS (1)
  1. BUDESONIDE NASAL SPRAY [Suspect]
     Active Substance: BUDESONIDE
     Indication: PRODUCT USED FOR UNKNOWN INDICATION
     Dosage: UNK, 1 SPRAY EACH NOSTRIL
     Route: 045
     Dates: start: 20190730

REACTIONS (1)
  - Headache [Unknown]

NARRATIVE: CASE EVENT DATE: 201907
